FAERS Safety Report 13787296 (Version 1)
Quarter: 2017Q3

REPORT INFORMATION
  Report Type: Spontaneous
  Country: US (occurrence: US)
  Receive Date: 20170725
  Receipt Date: 20170725
  Transmission Date: 20171127
  Serious: No
  Sender: FDA-Public Use
  Company Number: US-JNJFOC-20170623113

PATIENT
  Age: 86 Year
  Sex: Male

DRUGS (2)
  1. TYLENOL EXTRA STRENGTH [Suspect]
     Active Substance: ACETAMINOPHEN
     Indication: PAIN
     Dosage: ONCE IN AM AND ONCE IN PM.
     Route: 048
  2. HYDROCODONE [Concomitant]
     Active Substance: HYDROCODONE
     Indication: PAIN
     Dosage: 3 IN MORNING AND 3 IN EVENING
     Route: 065

REACTIONS (2)
  - Inappropriate schedule of drug administration [Unknown]
  - Extra dose administered [Unknown]
